FAERS Safety Report 5304731-0 (Version None)
Quarter: 2007Q2

REPORT INFORMATION
  Report Type: 
  Country: None (occurrence: None)
  Receive Date: 20070423
  Receipt Date: 20070420
  Transmission Date: 20071010
  Serious: Yes (Hospitalization)
  Sender: FDA-Public Use
  Company Number: US-BRISTOL-MYERS SQUIBB COMPANY-13651641

PATIENT
  Age: 62 Year
  Sex: Male

DRUGS (11)
  1. CISPLATIN [Suspect]
     Indication: METASTATIC GASTRIC CANCER
     Route: 042
     Dates: start: 20070111, end: 20070111
  2. FLUOROURACIL [Suspect]
     Indication: METASTATIC GASTRIC CANCER
     Route: 041
     Dates: start: 20070111, end: 20070115
  3. DEXAMETHASONE 0.5MG TAB [Suspect]
     Indication: PROPHYLAXIS
     Route: 048
     Dates: start: 20070114, end: 20070114
  4. EMEND [Concomitant]
     Indication: PREMEDICATION
     Route: 048
     Dates: start: 20070111, end: 20070113
  5. LORAZEPAM [Concomitant]
     Route: 042
     Dates: start: 20070111, end: 20070111
  6. ONDANSETRON [Concomitant]
     Indication: PREMEDICATION
     Route: 042
     Dates: start: 20070111, end: 20070111
  7. COMPAZINE [Concomitant]
     Indication: VOMITING
     Route: 048
     Dates: start: 20070111
  8. COMPAZINE [Concomitant]
     Indication: NAUSEA
     Route: 048
     Dates: start: 20070111
  9. ZOFRAN [Concomitant]
     Indication: NAUSEA
     Route: 048
     Dates: start: 20070111
  10. ZOFRAN [Concomitant]
     Indication: VOMITING
     Route: 048
     Dates: start: 20070111
  11. HYDROCODONE [Concomitant]
     Indication: PAIN
     Dosage: DOSE VALUE = 5/500 MG
     Route: 048
     Dates: start: 20070102

REACTIONS (4)
  - HYPERBILIRUBINAEMIA [None]
  - HYPERGLYCAEMIA [None]
  - METABOLIC ACIDOSIS [None]
  - RENAL FAILURE [None]
